FAERS Safety Report 4948582-5 (Version None)
Quarter: 2006Q1

REPORT INFORMATION
  Report Type: 
  Country: None (occurrence: None)
  Receive Date: 20060201
  Receipt Date: 20051005
  Transmission Date: 20060701
  Serious: No
  Sender: FDA-Public Use
  Company Number: 2005PV002846

PATIENT
  Age: 49 Year
  Sex: Female
  Weight: 80.7403 kg

DRUGS (1)
  1. BYETTA [Suspect]
     Indication: DIABETES MELLITUS NON-INSULIN-DEPENDENT
     Dosage: 5 MCG; BID; SC
     Route: 058
     Dates: start: 20050928

REACTIONS (4)
  - DYSPNOEA [None]
  - GROIN PAIN [None]
  - MUSCULOSKELETAL DISCOMFORT [None]
  - NAUSEA [None]
